FAERS Safety Report 5813790-8 (Version None)
Quarter: 2008Q3

REPORT INFORMATION
  Report Type: 
  Country: None (occurrence: None)
  Receive Date: 20080717
  Receipt Date: 20080703
  Transmission Date: 20090109
  Serious: Yes (Hospitalization, Disabling)
  Sender: FDA-Public Use
  Company Number: ES-AVENTIS-200816344GDDC

PATIENT
  Age: 84 Year
  Sex: Female

DRUGS (6)
  1. DAONIL [Suspect]
     Indication: DIABETES MELLITUS
     Route: 048
  2. MASDIL [Suspect]
     Route: 048
     Dates: start: 20040526
  3. ASPIRIN [Concomitant]
     Route: 048
  4. DIOVAN HCT [Concomitant]
     Dosage: DOSE: 80/12.5
     Route: 048
  5. DIASTABOL [Concomitant]
     Route: 048
  6. ESTOMIL [Concomitant]
     Route: 048

REACTIONS (2)
  - ATRIOVENTRICULAR BLOCK [None]
  - DRUG INTERACTION [None]
